FAERS Safety Report 10150517 (Version 3)
Quarter: 2014Q2

REPORT INFORMATION
  Report Type: Spontaneous
  Country: US (occurrence: US)
  Receive Date: 20140502
  Receipt Date: 20140515
  Transmission Date: 20141212
  Serious: Yes (Other)
  Sender: FDA-Public Use
  Company Number: US-DENDREON CORPORATION-2014PROUSA03687

PATIENT
  Age: 64 Year
  Sex: Male
  Weight: 70.3 kg

DRUGS (17)
  1. PROVENGE [Suspect]
     Indication: PROSTATE CANCER METASTATIC
     Dosage: 250 ML, SINGLE
     Route: 042
     Dates: start: 20140404, end: 20140404
  2. PROVENGE [Suspect]
     Dosage: 250 ML, SINGLE
     Route: 042
     Dates: start: 20140417, end: 20140417
  3. LEUPROLIDE [Suspect]
     Indication: PROSTATE CANCER METASTATIC
     Dosage: 7.5 MG, EVERY 3 MONTHS
     Route: 030
     Dates: start: 201206
  4. LEUPROLIDE [Suspect]
     Dosage: 7.5 MG, EVERY 3 MONTHS
     Route: 030
     Dates: start: 20101223
  5. CALCIUM/VITAMIN D [Concomitant]
     Indication: PRODUCT USED FOR UNKNOWN INDICATION
     Dosage: 500/125 MG-UNIT, QD
     Route: 048
  6. DOCOSAHEXANOIC ACID W/EICOSAPENTAENOIC ACID [Concomitant]
     Indication: PRODUCT USED FOR UNKNOWN INDICATION
     Dosage: 1 DF, QD
     Route: 048
  7. VITAMIN D2 [Concomitant]
     Indication: PRODUCT USED FOR UNKNOWN INDICATION
     Dosage: 1500 MG, QD
     Route: 048
  8. ESCITALOPRAM [Concomitant]
     Indication: PRODUCT USED FOR UNKNOWN INDICATION
     Dosage: 10 MG, UNK
     Route: 048
  9. GABAPENTIN [Concomitant]
     Indication: PRODUCT USED FOR UNKNOWN INDICATION
     Dosage: 100 MG, TID
     Route: 048
  10. NORCO [Concomitant]
     Indication: PAIN
     Dosage: 10-325 MG, PRN
     Route: 048
  11. IBUPROFEN [Concomitant]
     Indication: PAIN
     Dosage: 600 MG, PRN EVERY 6 HOURS
     Route: 048
  12. METHYLPHENIDATE [Concomitant]
     Indication: FATIGUE
     Dosage: 5 MG, PRN
     Route: 048
  13. METHYLPHENIDATE [Concomitant]
     Indication: DISTURBANCE IN ATTENTION
  14. TAMSULOSIN [Concomitant]
     Indication: PRODUCT USED FOR UNKNOWN INDICATION
     Dosage: 0.4 MG, BID
     Route: 048
  15. MARIJUANA [Concomitant]
     Indication: DECREASED APPETITE
  16. VENLAFAXINE [Concomitant]
     Indication: COGNITIVE DISORDER
     Dosage: 150 MG, QD
     Route: 048
  17. LIDOCAINE [Concomitant]
     Indication: PRODUCT USED FOR UNKNOWN INDICATION
     Dosage: 0.1 TO 0.3 ML, SINGLE
     Route: 058

REACTIONS (1)
  - Pulmonary embolism [Unknown]
